FAERS Safety Report 7385712-2 (Version None)
Quarter: 2011Q1

REPORT INFORMATION
  Report Type: 
  Country: None (occurrence: None)
  Receive Date: 20110301
  Receipt Date: 20100312
  Transmission Date: 20110831
  Serious: No
  Sender: FDA-Public Use
  Company Number: 2211100-US-JNJFOC-20091104458

PATIENT
  Age: 49 Year
  Sex: Female
  Weight: 81.6475 kg

DRUGS (3)
  1. MOTRIN IB [Suspect]
     Indication: ARTHRITIS
     Dosage: 800 MG, 1 IN 1 AS NECESSARY, ORAL
     Route: 048
     Dates: start: 20091001
  2. TYLENOL (CAPLET) [Suspect]
     Indication: ARTHRITIS
     Dosage: 1300 MG, 1 IN 1 DAY, ORAL
     Route: 048
  3. TYLENOL (CAPLET) [Suspect]
     Indication: ARTHRITIS
     Dosage: 1000 MG, ORAL
     Route: 048

REACTIONS (2)
  - INCORRECT DOSE ADMINISTERED [None]
  - DRUG INEFFECTIVE [None]
